FAERS Safety Report 8508438-8 (Version None)
Quarter: 2012Q3

REPORT INFORMATION
  Report Type: 
  Country: None (occurrence: None)
  Receive Date: 20120713
  Receipt Date: 20120703
  Transmission Date: 20120928
  Serious: No
  Sender: FDA-Public Use
  Company Number: CA-JNJFOC-20120702494

PATIENT
  Sex: Female
  Weight: 66.8 kg

DRUGS (7)
  1. VITAMIN D [Concomitant]
     Route: 065
  2. CALCIUM [Concomitant]
     Route: 065
  3. REMICADE [Suspect]
     Indication: COLITIS ULCERATIVE
     Dosage: TODAY WAS FIFTEEN INFUSION.
     Route: 042
     Dates: start: 20100630
  4. DICETEL [Concomitant]
     Route: 065
  5. VITALUX NOS [Concomitant]
     Indication: MACULAR DEGENERATION
     Route: 065
  6. ASACOL [Concomitant]
     Indication: COLITIS ULCERATIVE
     Route: 048
  7. SYNTHROID [Concomitant]
     Route: 065

REACTIONS (3)
  - INFUSION RELATED REACTION [None]
  - ORAL HERPES [None]
  - PRURITUS [None]
